FAERS Safety Report 8082449-1 (Version None)
Quarter: 2012Q1

REPORT INFORMATION
  Report Type: 
  Country: None (occurrence: None)
  Receive Date: 20120127
  Receipt Date: 20110215
  Transmission Date: 20120608
  Serious: No
  Sender: FDA-Public Use
  Company Number: US-ABBOTT-11P-163-0706419-00

PATIENT
  Sex: Female
  Weight: 77.18 kg

DRUGS (7)
  1. HYDROCHLOROTHIAZIDE [Concomitant]
     Indication: BLOOD PRESSURE
  2. DILANTIN [Concomitant]
     Indication: PARTIAL SEIZURES
  3. ESTRATEST [Concomitant]
     Indication: HORMONE REPLACEMENT THERAPY
  4. ATENOLOL [Concomitant]
     Indication: HYPERTENSION
  5. PLAVIX [Concomitant]
     Indication: BLOOD CHOLESTEROL INCREASED
  6. HUMIRA [Suspect]
     Indication: PSORIASIS
     Dates: start: 20090101
  7. ASPIRIN [Concomitant]
     Indication: CARDIOVASCULAR EVENT PROPHYLAXIS

REACTIONS (1)
  - INJECTION SITE PAIN [None]
